FAERS Safety Report 9513474 (Version 1)
Quarter: 2013Q3

REPORT INFORMATION
  Report Type: Spontaneous
  Country: US (occurrence: US)
  Receive Date: 20130910
  Receipt Date: 20130910
  Transmission Date: 20140515
  Serious: No
  Sender: FDA-Public Use
  Company Number: US-TARO-2013P1004428

PATIENT
  Age: 56 Year
  Sex: Female
  Weight: 176.9 kg

DRUGS (4)
  1. WARFARIN SODIUM TABLETS USP 5MG [Suspect]
     Indication: PULMONARY EMBOLISM
     Route: 048
     Dates: start: 20130321, end: 20130328
  2. WARFARIN SODIUM TABLETS USP 5MG [Suspect]
     Indication: PULMONARY EMBOLISM
     Route: 048
     Dates: start: 20130321, end: 20130328
  3. ATENOLOL [Concomitant]
     Dates: start: 2003
  4. DILTIAZEM XR [Concomitant]
     Dates: start: 2003

REACTIONS (3)
  - Pruritus [Recovered/Resolved]
  - Papule [Recovered/Resolved]
  - Rash [Recovered/Resolved]
